FAERS Safety Report 5734466-1 (Version None)
Quarter: 2008Q2

REPORT INFORMATION
  Report Type: 
  Country: None (occurrence: None)
  Receive Date: 20080512
  Receipt Date: 20080501
  Transmission Date: 20081010
  Serious: Yes (Other)
  Sender: FDA-Public Use
  Company Number: JP-NOVOPROD-263344

PATIENT
  Age: 46 Year
  Sex: Male
  Weight: 51 kg

DRUGS (3)
  1. NOVORAPID CHU [Suspect]
     Indication: TYPE 1 DIABETES MELLITUS
     Dosage: 4 IU, QD
     Route: 058
     Dates: start: 20050201, end: 20070420
  2. NOVOLIN R [Concomitant]
     Indication: TYPE 1 DIABETES MELLITUS
     Dosage: 26 IU, QD
     Route: 058
  3. MERCAZOLE [Concomitant]
     Indication: HYPERTHYROIDISM
     Dosage: 10 MG, QD
     Route: 048

REACTIONS (2)
  - CYST [None]
  - GOITRE [None]
